FAERS Safety Report 25462759 (Version 3)
Quarter: 2025Q3

REPORT INFORMATION
  Report Type: Spontaneous
  Country: EU (occurrence: EU)
  Receive Date: 20250620
  Receipt Date: 20250924
  Transmission Date: 20251020
  Serious: Yes (Other)
  Sender: BRISTOL-MYERS SQUIBB COMPANY
  Company Number: EU-BRISTOL-MYERS SQUIBB COMPANY-2025-086829

PATIENT
  Age: 95 Year
  Sex: Male
  Weight: 90 kg

DRUGS (13)
  1. ELIQUIS [Suspect]
     Active Substance: APIXABAN
     Indication: Atrial fibrillation
     Dosage: 5 MG IN THE MORNING AND 5 MG IN THE EVENING
  2. BISOPROLOL FUMARATE [Concomitant]
     Active Substance: BISOPROLOL FUMARATE
     Indication: Cardiac disorder
     Dosage: 1 IN THE MORNING
  3. FERRO-SANOL DUODENAL [Concomitant]
     Active Substance: FERROUS GLYCINE SULFATE
     Indication: Product used for unknown indication
     Dosage: 1 IN THE MORNING, 1 IN THE EVENING
  4. HYDROCHLOROTHIAZIDE [Concomitant]
     Active Substance: HYDROCHLOROTHIAZIDE
     Indication: Discomfort
     Dosage: 1 IN THE MORNING
  5. HYDROCHLOROTHIAZIDE [Concomitant]
     Active Substance: HYDROCHLOROTHIAZIDE
     Indication: Blood pressure fluctuation
  6. HYDROMORPHONE [Concomitant]
     Active Substance: HYDROMORPHONE
     Indication: Product used for unknown indication
  7. HYDROMORPHONE [Concomitant]
     Active Substance: HYDROMORPHONE
     Dosage: 8 MG EXTENDED-RELEASE CAPSULE IN THE MORNING
  8. LACTULOSE [Concomitant]
     Active Substance: LACTULOSE
     Indication: Dyspepsia
  9. MIRABEGRON [Concomitant]
     Active Substance: MIRABEGRON
     Indication: Fluid retention
     Dosage: EXTENDED-RELEASE CAPSULE 1 IN THE MORNING
  10. LYRICA [Concomitant]
     Active Substance: PREGABALIN
     Indication: Nervous system disorder
     Dosage: 1 IN THE MORNING
  11. METAMIZOLE SODIUM [Concomitant]
     Active Substance: METAMIZOLE SODIUM
     Indication: Product used for unknown indication
  12. METAMIZOLE SODIUM [Concomitant]
     Active Substance: METAMIZOLE SODIUM
  13. Hydromorphon-HCL [Concomitant]
     Indication: Product used for unknown indication
     Dosage: 4 MG EXTENDED-RELEASE CAPSULE IN THE EVENING

REACTIONS (2)
  - Macular degeneration [Unknown]
  - Condition aggravated [Unknown]
